FAERS Safety Report 8769056 (Version 2)
Quarter: 2012Q4

REPORT INFORMATION
  Report Type: 
  Country: DE (occurrence: DE)
  Receive Date: 20120905
  Receipt Date: 20121115
  Transmission Date: 20130627
  Serious: Yes (Life-Threatening, Hospitalization, Other)
  Sender: FDA-Public Use
  Company Number: DE-JNJFOC-20120901513

PATIENT
  Age: 83 Year
  Sex: Male
  Weight: 74 kg

DRUGS (10)
  1. XARELTO [Suspect]
     Indication: CEREBROVASCULAR ACCIDENT PROPHYLAXIS
     Route: 048
  2. XARELTO [Suspect]
     Indication: ATRIAL FIBRILLATION
     Route: 048
  3. MIFLONIDE [Suspect]
     Indication: PRODUCT USED FOR UNKNOWN INDICATION
     Route: 065
  4. VALSARTAN [Concomitant]
     Route: 065
  5. RASILEZ [Concomitant]
     Route: 048
  6. HYDROCORTISONE [Concomitant]
     Route: 048
  7. THEOPHYLLIN [Concomitant]
     Route: 065
  8. SPIRIVA [Concomitant]
     Route: 065
  9. EXFORGE [Concomitant]
     Route: 065
  10. IBUPROFEN [Concomitant]
     Route: 048

REACTIONS (4)
  - Fall [Unknown]
  - Subarachnoid haemorrhage [Unknown]
  - Epilepsy [Unknown]
  - Monoparesis [Unknown]
